FAERS Safety Report 9014243 (Version 2)
Quarter: 2013Q3

REPORT INFORMATION
  Report Type: Spontaneous
  Country: US (occurrence: US)
  Receive Date: 20130115
  Receipt Date: 20130820
  Transmission Date: 20140515
  Serious: Yes (Death)
  Sender: FDA-Public Use
  Company Number: US-CELGENEUS-163-21880-13011310

PATIENT
  Sex: Male

DRUGS (25)
  1. REVLIMID [Suspect]
     Indication: PLASMA CELL MYELOMA
     Dosage: 25 MILLIGRAM
     Route: 048
     Dates: start: 20120521, end: 2012
  2. VELCADE [Concomitant]
     Indication: PRODUCT USED FOR UNKNOWN INDICATION
     Route: 065
  3. MYLICON [Concomitant]
     Indication: PRODUCT USED FOR UNKNOWN INDICATION
     Route: 065
  4. VITAMIN B12 [Concomitant]
     Indication: PRODUCT USED FOR UNKNOWN INDICATION
     Route: 048
  5. FLOMAX [Concomitant]
     Indication: BENIGN PROSTATIC HYPERPLASIA
     Route: 065
  6. ATROVENT HFA [Concomitant]
     Indication: CHRONIC OBSTRUCTIVE PULMONARY DISEASE
     Dosage: INHALE 1 TO 2 PUFFS
     Route: 055
     Dates: start: 20120612
  7. COMBIVENT AERO [Concomitant]
     Indication: CHRONIC OBSTRUCTIVE PULMONARY DISEASE
     Route: 065
  8. PROVENTIL HFA 108 [Concomitant]
     Indication: CHRONIC OBSTRUCTIVE PULMONARY DISEASE
     Dosage: USE 2 PUFFS
     Route: 065
     Dates: start: 20121130
  9. NEXIUM [Concomitant]
     Indication: GASTROOESOPHAGEAL REFLUX DISEASE
     Route: 065
  10. OMEPRAZOLE [Concomitant]
     Indication: ROUTINE HEALTH MAINTENANCE
     Dosage: 20 MILLIGRAM
     Route: 048
     Dates: start: 20121003
  11. FOLIC ACID [Concomitant]
     Indication: INTERVERTEBRAL DISC PROTRUSION
     Dosage: 1 MILLIGRAM
     Route: 048
     Dates: start: 20120703
  12. CARAFATE/MYALOX/NYSTATIN [Concomitant]
     Indication: INTERVERTEBRAL DISC PROTRUSION
     Dosage: 1:1:1 RATIO LIQUID
     Route: 065
     Dates: start: 20120703
  13. CARAFATE/MYALOX/NYSTATIN [Concomitant]
     Indication: MUCOSAL INFLAMMATION
  14. FUROSEMIDE [Concomitant]
     Indication: HYPOKALAEMIA
     Dosage: 40 MILLIGRAM
     Route: 048
     Dates: start: 20121120
  15. FUROSEMIDE [Concomitant]
     Indication: MUCOSAL INFLAMMATION
     Dates: start: 20120524
  16. FUROSEMIDE [Concomitant]
     Indication: PANCYTOPENIA
  17. KLOR-CON M20 [Concomitant]
     Indication: HYPOKALAEMIA
     Dosage: 20 MILLIEQUIVALENTS
     Route: 048
     Dates: start: 20121120
  18. FLUCONAZOLE [Concomitant]
     Indication: MUCOSAL INFLAMMATION
     Dosage: 100 MILLIGRAM
     Route: 048
     Dates: start: 20120703
  19. ACYCLOVIR [Concomitant]
     Indication: PLASMA CELL MYELOMA
     Dosage: 800 MILLIGRAM
     Route: 048
     Dates: start: 20120524
  20. ACYCLOVIR [Concomitant]
     Indication: PANCYTOPENIA
     Dosage: 400 MILLIGRAM
     Route: 048
     Dates: start: 20121120
  21. DEXAMETHASONE [Concomitant]
     Indication: PLASMA CELL MYELOMA
     Dosage: 20 MILLIGRAM
     Route: 048
     Dates: start: 20120504
  22. DESYREL [Concomitant]
     Indication: INSOMNIA
     Route: 048
  23. PROCHLORPERAZINE MALEATE [Concomitant]
     Indication: NAUSEA
     Route: 048
     Dates: start: 20120504
  24. PROCHLORPERAZINE MALEATE [Concomitant]
     Indication: PLASMA CELL MYELOMA
  25. CIPROFLOXACIN HCL [Concomitant]
     Indication: PANCYTOPENIA
     Dosage: 1000 MILLIGRAM
     Route: 048
     Dates: start: 20120507

REACTIONS (1)
  - Influenza [Fatal]
